FAERS Safety Report 22902627 (Version 2)
Quarter: 2023Q4

REPORT INFORMATION
  Report Type: Report from Study
  Country: US (occurrence: US)
  Receive Date: 20230904
  Receipt Date: 20231205
  Transmission Date: 20240109
  Serious: No
  Sender: FDA-Public Use
  Company Number: US-002147023-NVSC2023US191338

PATIENT
  Sex: Female

DRUGS (6)
  1. VIJOICE [Suspect]
     Active Substance: ALPELISIB
     Indication: Product used for unknown indication
     Dosage: UNK
     Route: 065
  2. VIJOICE [Suspect]
     Active Substance: ALPELISIB
     Dosage: 250 MG, QD
     Route: 065
  3. VIJOICE [Suspect]
     Active Substance: ALPELISIB
     Dosage: 100 MG, QD
     Route: 065
  4. VIJOICE [Suspect]
     Active Substance: ALPELISIB
     Dosage: 50 MG, QD
     Route: 065
  5. VIJOICE [Suspect]
     Active Substance: ALPELISIB
     Dosage: 50 MG, QOD
     Route: 065
  6. VIJOICE [Suspect]
     Active Substance: ALPELISIB
     Dosage: 100 MG, QOD
     Route: 065

REACTIONS (1)
  - Urticaria [Unknown]
